FAERS Safety Report 11637156 (Version 1)
Quarter: 2015Q4

REPORT INFORMATION
  Report Type: Spontaneous
  Country: US (occurrence: None)
  Receive Date: 20151015
  Receipt Date: 20151015
  Transmission Date: 20160304
  Serious: Yes (Disabling)
  Sender: FDA-Public Use
  Company Number: None

PATIENT
  Age: 63 Year
  Sex: Female
  Weight: 53.07 kg

DRUGS (12)
  1. MG [Concomitant]
     Active Substance: MAGNESIUM
  2. VITAMIN E [Concomitant]
     Active Substance: .ALPHA.-TOCOPHEROL
  3. CHOLESTOFF [Concomitant]
  4. VITAMIN B COMPLEX [Concomitant]
     Active Substance: CYANOCOBALAMIN\DEXPANTHENOL\NIACINAMIDE\PYRIDOXINE HYDROCHLORIDE\RIBOFLAVIN 5^-PHOSPHATE SODIUM\THIAMINE HYDROCHLORIDE\VITAMIN B COMPLEX
  5. LUTEIN [Concomitant]
     Active Substance: LUTEIN
  6. FISH OIL [Concomitant]
     Active Substance: FISH OIL
  7. L-THYROXINE [Concomitant]
     Active Substance: LEVOTHYROXINE
  8. ALENDRONATE [Suspect]
     Active Substance: ALENDRONATE SODIUM
     Indication: OSTEOPOROSIS
     Dosage: 1 TIME WEEKLY
     Dates: start: 20151011, end: 20151011
  9. CELEXA [Concomitant]
     Active Substance: CITALOPRAM HYDROBROMIDE
  10. GLUCOSAMINE [Concomitant]
     Active Substance: GLUCOSAMINE
  11. CA [Concomitant]
  12. D [Concomitant]

REACTIONS (8)
  - Discomfort [None]
  - Back pain [None]
  - Bone pain [None]
  - Neck pain [None]
  - Myalgia [None]
  - Muscle fatigue [None]
  - Feeling abnormal [None]
  - Musculoskeletal chest pain [None]

NARRATIVE: CASE EVENT DATE: 20151011
